FAERS Safety Report 7622608-2 (Version None)
Quarter: 2011Q3

REPORT INFORMATION
  Report Type: 
  Country: None (occurrence: None)
  Receive Date: 20110712
  Receipt Date: 20110624
  Transmission Date: 20111222
  Serious: Yes (Hospitalization, Other)
  Sender: FDA-Public Use
  Company Number: AUR-APL-2011-03680

PATIENT
  Age: 66 Year
  Sex: Female

DRUGS (7)
  1. ASPIRIN [Concomitant]
  2. SIMVASTATIN [Suspect]
     Indication: BLOOD CHOLESTEROL INCREASED
     Dosage: (40 MG),ORAL
     Route: 048
     Dates: start: 20100101, end: 20100228
  3. CLOZARIL [Suspect]
     Indication: SCHIZOPHRENIA
     Dosage: (425 MG),ORAL
     Route: 048
     Dates: start: 20110401
  4. CLOZARIL [Suspect]
     Indication: SCHIZOPHRENIA
     Dosage: (425 MG),ORAL
     Route: 048
     Dates: start: 20030101, end: 20110228
  5. CLOZARIL [Suspect]
     Indication: SCHIZOPHRENIA
     Dosage: (425 MG),ORAL
     Route: 048
     Dates: start: 20110305
  6. AMISULPRIDE (AMISULPRIDE) [Suspect]
     Indication: SCHIZOPHRENIA
     Dosage: OROPHARINGEAL (300 MG)
     Route: 049
     Dates: start: 20110401
  7. LEVOTHYROXINE SODIUM [Concomitant]

REACTIONS (6)
  - ALANINE AMINOTRANSFERASE INCREASED [None]
  - BLOOD BILIRUBIN INCREASED [None]
  - PNEUMONIA [None]
  - BLOOD ALKALINE PHOSPHATASE INCREASED [None]
  - HYPOTHYROIDISM [None]
  - OVARIAN ADENOMA [None]
